FAERS Safety Report 20704842 (Version 1)
Quarter: 2022Q1

REPORT INFORMATION
  Report Type: Spontaneous
  Country: None (occurrence: FR)
  Receive Date: 20220331
  Receipt Date: 20220331
  Transmission Date: 20220423
  Serious: Yes (Other)
  Sender: FDA-Public Use
  Company Number: FR-Stallergenes SAS-2127299

PATIENT
  Age: 44 Year
  Sex: Male

DRUGS (2)
  1. ORALAIR [Suspect]
     Active Substance: ANTHOXANTHUM ODORATUM POLLEN\DACTYLIS GLOMERATA POLLEN\LOLIUM PERENNE POLLEN\PHLEUM PRATENSE POLLEN\
     Indication: Product used for unknown indication
     Route: 060
  2. ORALAIR [Suspect]
     Active Substance: ANTHOXANTHUM ODORATUM POLLEN\DACTYLIS GLOMERATA POLLEN\LOLIUM PERENNE POLLEN\PHLEUM PRATENSE POLLEN\
     Route: 060
     Dates: start: 20220103, end: 20220109

REACTIONS (6)
  - Dyspnoea [Unknown]
  - Dysphagia [Unknown]
  - Oedema [Unknown]
  - Urticaria [Unknown]
  - Pruritus [Unknown]
  - Oral pruritus [Unknown]

NARRATIVE: CASE EVENT DATE: 20220103
